FAERS Safety Report 6646143-3 (Version None)
Quarter: 2010Q1

REPORT INFORMATION
  Report Type: 
  Country: None (occurrence: None)
  Receive Date: 20100318
  Receipt Date: 20100304
  Transmission Date: 20100710
  Serious: Yes (Other)
  Sender: FDA-Public Use
  Company Number: 2010-0734

PATIENT
  Age: 11 Year
  Sex: 0

DRUGS (1)
  1. INCRELEX [Suspect]
     Indication: DRUG USE FOR UNKNOWN INDICATION
     Dosage: (120 UG/K), SUBCUTANEOUS
     Route: 058

REACTIONS (1)
  - URTICARIA [None]
